FAERS Safety Report 18717269 (Version 2)
Quarter: 2021Q1

REPORT INFORMATION
  Report Type: Spontaneous
  Country: CN (occurrence: CN)
  Receive Date: 20210108
  Receipt Date: 20210113
  Transmission Date: 20210419
  Serious: Yes (Hospitalization, Other)
  Sender: FDA-Public Use
  Company Number: CN-PFIZER INC-2021008386

PATIENT
  Age: 15 Year
  Sex: Female
  Weight: 44 kg

DRUGS (18)
  1. ENDOXAN?BAXTER [Suspect]
     Active Substance: CYCLOPHOSPHAMIDE
     Dosage: 0.2 G, 1X/DAY (QD)
     Route: 041
     Dates: start: 20200622, end: 20200622
  2. SOLU?MEDROL [Suspect]
     Active Substance: METHYLPREDNISOLONE SODIUM SUCCINATE
     Dosage: 40 MG, 2X/DAY (Q12H)
     Route: 041
     Dates: start: 20200603, end: 20200717
  3. MEDROL [Suspect]
     Active Substance: METHYLPREDNISOLONE
     Dosage: 10 MG, 2X/DAY
     Route: 048
     Dates: start: 20200923, end: 20201102
  4. ENDOXAN?BAXTER [Suspect]
     Active Substance: CYCLOPHOSPHAMIDE
     Dosage: 0.2 G, 1X/DAY (QD)
     Route: 041
     Dates: start: 20200624, end: 20200624
  5. ENDOXAN?BAXTER [Suspect]
     Active Substance: CYCLOPHOSPHAMIDE
     Dosage: 0.4 G, 1X/DAY
     Route: 041
     Dates: start: 20200710, end: 20200710
  6. ENDOXAN?BAXTER [Suspect]
     Active Substance: CYCLOPHOSPHAMIDE
     Dosage: 0.4 G, 1X/DAY
     Route: 041
     Dates: start: 20200712, end: 20200712
  7. MEDROL [Suspect]
     Active Substance: METHYLPREDNISOLONE
     Indication: SYSTEMIC LUPUS ERYTHEMATOSUS
     Dosage: 16 MG, 2X/DAY
     Route: 048
     Dates: start: 20200815, end: 20200827
  8. CYCLOSPORINE. [Suspect]
     Active Substance: CYCLOSPORINE
     Indication: SYSTEMIC LUPUS ERYTHEMATOSUS
     Dosage: 50 MG, 2X/DAY
     Route: 048
     Dates: start: 20200615, end: 20200619
  9. CYCLOSPORINE. [Suspect]
     Active Substance: CYCLOSPORINE
     Dosage: 50 MG, 2X/DAY
     Route: 048
     Dates: start: 20200926, end: 20201222
  10. ENDOXAN?BAXTER [Suspect]
     Active Substance: CYCLOPHOSPHAMIDE
     Indication: SYSTEMIC LUPUS ERYTHEMATOSUS
     Dosage: 0.2 G, 1X/DAY (QD)
     Route: 041
     Dates: start: 20200620, end: 20200620
  11. CYCLOSPORINE. [Suspect]
     Active Substance: CYCLOSPORINE
     Dosage: 100 MG, 2X/DAY
     Route: 048
     Dates: start: 20200814, end: 20200925
  12. SOLU?MEDROL [Suspect]
     Active Substance: METHYLPREDNISOLONE SODIUM SUCCINATE
     Indication: SYSTEMIC LUPUS ERYTHEMATOSUS
     Dosage: 40 MG, 2X/DAY (Q12H)
     Route: 041
     Dates: start: 20200516, end: 20200528
  13. SOLU?MEDROL [Suspect]
     Active Substance: METHYLPREDNISOLONE SODIUM SUCCINATE
     Dosage: 0.5 G, 1X/DAY (QD)
     Route: 041
     Dates: start: 20200528, end: 20200529
  14. SOLU?MEDROL [Suspect]
     Active Substance: METHYLPREDNISOLONE SODIUM SUCCINATE
     Dosage: 0.5 G, 1X/DAY (QD)
     Route: 041
     Dates: start: 20200601, end: 20200602
  15. SOLU?MEDROL [Suspect]
     Active Substance: METHYLPREDNISOLONE SODIUM SUCCINATE
     Dosage: 20 MG, 2X/DAY (Q12H)
     Route: 041
     Dates: start: 20200718, end: 20200814
  16. MEDROL [Suspect]
     Active Substance: METHYLPREDNISOLONE
     Dosage: 24 MG, 1X/DAY (QM, EVERY MORNING)
     Route: 048
     Dates: start: 20200828, end: 20200922
  17. SOLU?MEDROL [Suspect]
     Active Substance: METHYLPREDNISOLONE SODIUM SUCCINATE
     Dosage: 0.5 G, 1X/DAY (QD)
     Route: 041
     Dates: start: 20200811, end: 20200813
  18. MEDROL [Suspect]
     Active Substance: METHYLPREDNISOLONE
     Dosage: 8 MG, 2X/DAY
     Route: 048
     Dates: start: 20201103, end: 20201222

REACTIONS (6)
  - Herpes virus infection [Unknown]
  - Haemophilus infection [Unknown]
  - Parvovirus infection [Unknown]
  - Laryngeal papilloma [Recovering/Resolving]
  - Epstein-Barr virus infection [Unknown]
  - Infection [Recovering/Resolving]

NARRATIVE: CASE EVENT DATE: 20201023
